FAERS Safety Report 9236889 (Version 4)
Quarter: 2013Q4

REPORT INFORMATION
  Report Type: Spontaneous
  Country: US (occurrence: US)
  Receive Date: 20130417
  Receipt Date: 20131029
  Transmission Date: 20140711
  Serious: Yes (Death, Other)
  Sender: FDA-Public Use
  Company Number: US-BRISTOL-MYERS SQUIBB COMPANY-18766113

PATIENT
  Age: 59 Year
  Sex: Female

DRUGS (9)
  1. BYETTA [Suspect]
     Indication: TYPE 2 DIABETES MELLITUS
     Dates: start: 2011
  2. VICTOZA [Suspect]
     Indication: TYPE 2 DIABETES MELLITUS
     Dates: start: 20110908, end: 20120105
  3. JANUMET [Suspect]
     Indication: TYPE 2 DIABETES MELLITUS
     Dates: start: 20110702, end: 20110905
  4. BENAZEPRIL HCL [Concomitant]
  5. CRESTOR [Concomitant]
  6. VITAMIN D [Concomitant]
  7. LANTUS [Concomitant]
     Dosage: 20 UNITS
  8. VICTOZA [Concomitant]
  9. HUMALOG [Concomitant]

REACTIONS (5)
  - Pancreatic carcinoma [Fatal]
  - Metastases to liver [Unknown]
  - Jaundice [Unknown]
  - Weight fluctuation [Unknown]
  - Ammonia increased [Unknown]
